FAERS Safety Report 4583201-1 (Version None)
Quarter: 2005Q1

REPORT INFORMATION
  Report Type: 
  Country: None (occurrence: None)
  Receive Date: 20050125
  Receipt Date: 20041005
  Transmission Date: 20050727
  Serious: No
  Sender: FDA-Public Use
  Company Number: USA030947832

PATIENT
  Age: 79 Year
  Sex: Female
  Weight: 55 kg

DRUGS (7)
  1. FORTEO [Suspect]
     Indication: OSTEOARTHRITIS
     Dates: start: 20030816
  2. FORTEO [Suspect]
     Indication: OSTEOPOROSIS
     Dates: start: 20030816
  3. VITAMIN K [Concomitant]
  4. SYNTHROID [Concomitant]
  5. CHOLESTEROL [Concomitant]
  6. ATENOLOL [Concomitant]
  7. LEVOXYL [Concomitant]

REACTIONS (4)
  - BURNING SENSATION [None]
  - INJECTION SITE HAEMORRHAGE [None]
  - INJECTION SITE PAIN [None]
  - NAUSEA [None]
